FAERS Safety Report 23869783 (Version 1)
Quarter: 2024Q2

REPORT INFORMATION
  Report Type: Spontaneous
  Country: DE (occurrence: DE)
  Receive Date: 20240517
  Receipt Date: 20240517
  Transmission Date: 20240716
  Serious: Yes (Hospitalization, Other)
  Sender: FDA-Public Use
  Company Number: None

PATIENT
  Age: 28 Year
  Sex: Female
  Weight: 108 kg

DRUGS (3)
  1. CLINDAMYCIN PHOSPHATE [Suspect]
     Active Substance: CLINDAMYCIN PHOSPHATE
     Indication: Antibiotic prophylaxis
     Dosage: UNK
     Route: 042
     Dates: start: 20240503, end: 20240503
  2. ROCURONIUM [Suspect]
     Active Substance: ROCURONIUM BROMIDE
     Indication: Antibiotic prophylaxis
     Dosage: UNK
     Route: 042
     Dates: start: 20240503, end: 20240503
  3. PROPOFOL [Suspect]
     Active Substance: PROPOFOL
     Indication: Antibiotic prophylaxis
     Dosage: UNK
     Route: 042
     Dates: start: 20240503, end: 20240503

REACTIONS (3)
  - Swelling face [Recovering/Resolving]
  - Angioedema [Recovering/Resolving]
  - Dependence on respirator [Recovered/Resolved]

NARRATIVE: CASE EVENT DATE: 20240503
